FAERS Safety Report 15554028 (Version 4)
Quarter: 2020Q2

REPORT INFORMATION
  Report Type: Report from Study
  Country: JP (occurrence: JP)
  Receive Date: 20181026
  Receipt Date: 20200420
  Transmission Date: 20200713
  Serious: Yes (Other)
  Sender: FDA-Public Use
  Company Number: JP-BIOGEN-2018BI00527538

PATIENT
  Age: 2 Year
  Sex: Male
  Weight: 8.2 kg

DRUGS (23)
  1. SPINRAZA [Suspect]
     Active Substance: NUSINERSEN
     Route: 050
     Dates: start: 20181212, end: 20181212
  2. HERBAL NOS [Concomitant]
     Active Substance: HERBALS
     Indication: GASTROINTESTINAL HYPOMOTILITY
     Dosage: NASOTRACHEAL FEEDING
  3. EPINASTINE. [Concomitant]
     Active Substance: EPINASTINE HYDROCHLORIDE
     Indication: RHINITIS ALLERGIC
     Dosage: NASOTRACHEAL FEEDING
  4. SEVOFLURANE. [Concomitant]
     Active Substance: SEVOFLURANE
     Route: 050
     Dates: start: 20180214, end: 20180214
  5. SEVOFLURANE. [Concomitant]
     Active Substance: SEVOFLURANE
     Route: 050
     Dates: start: 20180228, end: 20180228
  6. SEVOFLURANE. [Concomitant]
     Active Substance: SEVOFLURANE
     Route: 050
     Dates: start: 20190424, end: 20190424
  7. PROPOFOL. [Concomitant]
     Active Substance: PROPOFOL
     Route: 050
     Dates: start: 20180214, end: 20180214
  8. PROPOFOL. [Concomitant]
     Active Substance: PROPOFOL
     Route: 050
     Dates: start: 20181212, end: 20181212
  9. SPINRAZA [Suspect]
     Active Substance: NUSINERSEN
     Route: 050
     Dates: start: 20180808, end: 20180808
  10. SEVOFLURANE. [Concomitant]
     Active Substance: SEVOFLURANE
     Route: 050
     Dates: start: 20180808, end: 20180808
  11. SPINRAZA [Suspect]
     Active Substance: NUSINERSEN
     Route: 050
     Dates: start: 20180214, end: 20180214
  12. SPINRAZA [Suspect]
     Active Substance: NUSINERSEN
     Route: 050
     Dates: start: 20190424, end: 20190424
  13. SEVOFLURANE. [Concomitant]
     Active Substance: SEVOFLURANE
     Indication: ANAESTHESIA PROCEDURE
     Route: 050
     Dates: start: 20180131, end: 20180131
  14. PROPOFOL. [Concomitant]
     Active Substance: PROPOFOL
     Route: 050
     Dates: start: 20180808, end: 20180808
  15. SPINRAZA [Suspect]
     Active Substance: NUSINERSEN
     Indication: SPINAL MUSCULAR ATROPHY
     Route: 050
     Dates: start: 20180131, end: 20180131
  16. SPINRAZA [Suspect]
     Active Substance: NUSINERSEN
     Route: 050
     Dates: start: 20180404, end: 20180404
  17. SEVOFLURANE. [Concomitant]
     Active Substance: SEVOFLURANE
     Route: 050
     Dates: start: 20180404, end: 20180404
  18. SPINRAZA [Suspect]
     Active Substance: NUSINERSEN
     Route: 050
     Dates: start: 20180228, end: 20180228
  19. PROPOFOL. [Concomitant]
     Active Substance: PROPOFOL
     Indication: ANAESTHESIA PROCEDURE
     Dates: start: 20180131, end: 20180131
  20. PROPOFOL. [Concomitant]
     Active Substance: PROPOFOL
     Route: 050
     Dates: start: 20180404, end: 20180404
  21. PROPOFOL. [Concomitant]
     Active Substance: PROPOFOL
     Route: 050
     Dates: start: 20190424, end: 20190424
  22. SEVOFLURANE. [Concomitant]
     Active Substance: SEVOFLURANE
     Route: 050
     Dates: start: 20181212, end: 20181212
  23. PROPOFOL. [Concomitant]
     Active Substance: PROPOFOL
     Route: 050
     Dates: start: 20180228, end: 20180228

REACTIONS (3)
  - Upper gastrointestinal haemorrhage [Recovered/Resolved]
  - Increased upper airway secretion [Recovered/Resolved]
  - Somnolence [Recovered/Resolved]

NARRATIVE: CASE EVENT DATE: 20180131
